FAERS Safety Report 4434162-7 (Version None)
Quarter: 2004Q3

REPORT INFORMATION
  Report Type: 
  Country: None (occurrence: None)
  Receive Date: 20040825
  Receipt Date: 20040810
  Transmission Date: 20050211
  Serious: Yes (Hospitalization)
  Sender: FDA-Public Use
  Company Number: 04P-008-0270076-00

PATIENT
  Age: 61 Year
  Sex: Male
  Weight: 97.3 kg

DRUGS (6)
  1. MERIDIA [Suspect]
     Indication: OBESITY
     Dosage: 10 MG, 1 IN 1 D, PER ORAL
     Route: 048
     Dates: start: 20040707, end: 20040805
  2. AMIODARONE HYDROCHLORIDE [Concomitant]
  3. FUROSEMIDE [Concomitant]
  4. ATORVASTATIN [Concomitant]
  5. GOPTON [Concomitant]
  6. ACETYLSALICYLIC ACID [Concomitant]

REACTIONS (5)
  - BLOOD CREATINE PHOSPHOKINASE INCREASED [None]
  - GASTROENTERITIS [None]
  - MYOGLOBIN BLOOD INCREASED [None]
  - MYOPATHY [None]
  - MYOSITIS [None]
